FAERS Safety Report 19892228 (Version 1)
Quarter: 2021Q3

REPORT INFORMATION
  Report Type: Spontaneous
  Country: US (occurrence: US)
  Receive Date: 20210929
  Receipt Date: 20210929
  Transmission Date: 20211014
  Serious: No
  Sender: FDA-Public Use
  Company Number: US-BRISTOL-MYERS SQUIBB COMPANY-BMS-2021-097980

PATIENT
  Age: 81 Year
  Sex: Male
  Weight: 95.24 kg

DRUGS (1)
  1. ELIQUIS [Suspect]
     Active Substance: APIXABAN
     Indication: HAEMOPHILIA
     Dosage: 2.5 MILLIGRAM, QD
     Route: 048

REACTIONS (4)
  - Wound haemorrhage [Unknown]
  - Intentional product use issue [Unknown]
  - Rash macular [Not Recovered/Not Resolved]
  - Bleeding time prolonged [Unknown]
